FAERS Safety Report 25304138 (Version 1)
Quarter: 2025Q2

REPORT INFORMATION
  Report Type: Spontaneous
  Country: US (occurrence: US)
  Receive Date: 20250513
  Receipt Date: 20250513
  Transmission Date: 20250717
  Serious: Yes (Hospitalization, Other)
  Sender: NOVO NORDISK
  Company Number: US-NOVOPROD-1426089

PATIENT
  Sex: Female

DRUGS (2)
  1. OZEMPIC [Suspect]
     Active Substance: SEMAGLUTIDE
     Indication: Weight control
     Dates: start: 2024
  2. OZEMPIC [Suspect]
     Active Substance: SEMAGLUTIDE
     Indication: Glycosylated haemoglobin
     Dates: start: 202411

REACTIONS (13)
  - Hyperthyroidism [Unknown]
  - Hypercalcaemia [Unknown]
  - Brain oedema [Unknown]
  - Speech disorder [Unknown]
  - Dehydration [Unknown]
  - Taste disorder [Unknown]
  - Eating disorder [Unknown]
  - Cognitive disorder [Unknown]
  - Mobility decreased [Unknown]
  - Abdominal discomfort [Unknown]
  - Fatigue [Unknown]
  - Off label use [Unknown]
  - Off label use [Unknown]
